FAERS Safety Report 5055299-8 (Version None)
Quarter: 2006Q3

REPORT INFORMATION
  Report Type: 
  Country: None (occurrence: None)
  Receive Date: 20060714
  Receipt Date: 20060705
  Transmission Date: 20061208
  Serious: Yes (Hospitalization)
  Sender: FDA-Public Use
  Company Number: 2006VX000759

PATIENT
  Age: 64 Year
  Sex: Male

DRUGS (5)
  1. PERMAX [Suspect]
     Indication: PARKINSON'S DISEASE
     Dosage: 1750 UG; QD; PO
     Route: 048
  2. LEVODOPA [Concomitant]
  3. PRAMIPEXOLE DIHYDROCHLORIDE [Concomitant]
  4. SELEGILINE HYDROCHLORIDE [Concomitant]
  5. AMANTADINE HCL [Concomitant]

REACTIONS (4)
  - CARDIAC DISORDER [None]
  - CONDITION AGGRAVATED [None]
  - DEPRESSED LEVEL OF CONSCIOUSNESS [None]
  - NEUROLEPTIC MALIGNANT SYNDROME [None]
